FAERS Safety Report 16609101 (Version 1)
Quarter: 2019Q3

REPORT INFORMATION
  Report Type: Spontaneous
  Country: DE (occurrence: DE)
  Receive Date: 20190722
  Receipt Date: 20190722
  Transmission Date: 20191004
  Serious: Yes (Hospitalization)
  Sender: FDA-Public Use
  Company Number: DE-ASTRAZENECA-2019SF01901

PATIENT
  Age: 61 Year
  Sex: Female
  Weight: 116 kg

DRUGS (8)
  1. SPIRIVA [Concomitant]
     Active Substance: TIOTROPIUM BROMIDE MONOHYDRATE
     Dosage: 18 ?G, 1-0-0-0, DOSAGE AEROSOL
     Route: 055
  2. TRAZODONE [Concomitant]
     Active Substance: TRAZODONE HYDROCHLORIDE
     Dosage: 100 MG, 0-0-0-0.5, TABLETS
     Route: 048
  3. VIANI DISKUS [Concomitant]
     Active Substance: FLUTICASONE PROPIONATE\SALMETEROL XINAFOATE
     Dosage: 1-0-1-0, DOSAGE AEROSOL
     Route: 055
  4. RAMIPRIL HEXAL COMP. [Suspect]
     Active Substance: HYDROCHLOROTHIAZIDE\RAMIPRIL
     Dosage: 5 MG, 1-0-0-0, TABLETS
     Route: 048
  5. RISPERDAL [Suspect]
     Active Substance: RISPERIDONE
     Dosage: 3 MG, 1-0-1-0, TABLETS
     Route: 048
  6. SEROQUEL [Suspect]
     Active Substance: QUETIAPINE FUMARATE
     Dosage: 400 MG, 1-0-1-0, RETARD TABLETS
     Route: 048
  7. ZOPICLON-RATIOPHARM [Concomitant]
     Dosage: .5 MG, 0-0-0-1, TABLETS
     Route: 048
  8. BISOPROLOL [Concomitant]
     Active Substance: BISOPROLOL
     Dosage: 5 MG, 1-0-0-0, TABLETS
     Route: 048

REACTIONS (6)
  - Cough [Unknown]
  - Product prescribing error [Unknown]
  - Listless [Unknown]
  - Electrolyte imbalance [Unknown]
  - Face oedema [Unknown]
  - Fatigue [Unknown]
